FAERS Safety Report 24416355 (Version 3)
Quarter: 2024Q4

REPORT INFORMATION
  Report Type: Spontaneous
  Country: US (occurrence: US)
  Receive Date: 20241009
  Receipt Date: 20241227
  Transmission Date: 20250115
  Serious: Yes (Other)
  Sender: PFIZER
  Company Number: US-PFIZER INC-202400270032

PATIENT
  Age: 45 Year
  Sex: Male
  Weight: 104.33 kg

DRUGS (24)
  1. NURTEC ODT [Interacting]
     Active Substance: RIMEGEPANT SULFATE
     Indication: Migraine
     Dosage: 1 TABLET AS DIRECTED AS NEEDED
     Dates: start: 20220317
  2. BUPIVACAINE HYDROCHLORIDE [Interacting]
     Active Substance: BUPIVACAINE HYDROCHLORIDE
     Indication: Pain management
     Dosage: UNK
     Dates: start: 20200227
  3. DEPO-MEDROL [Interacting]
     Active Substance: METHYLPREDNISOLONE ACETATE
     Indication: Pain management
     Dosage: UNK
     Dates: start: 20200227
  4. LIDOCAINE HYDROCHLORIDE [Interacting]
     Active Substance: LIDOCAINE HYDROCHLORIDE
     Indication: Pain management
     Dosage: UNK
     Dates: start: 20200227
  5. GABAPENTIN [Interacting]
     Active Substance: GABAPENTIN
     Dosage: UNK
  6. TRAZODONE [Interacting]
     Active Substance: TRAZODONE HYDROCHLORIDE
     Dosage: UNK
  7. AMLODIPINE BESYLATE\BENAZEPRIL HYDROCHLORIDE [Concomitant]
     Active Substance: AMLODIPINE BESYLATE\BENAZEPRIL HYDROCHLORIDE
     Dosage: TAKE 1 CAPSULE BY MOUTH DAILY
     Route: 048
     Dates: start: 20220317
  8. BACLOFEN [Concomitant]
     Active Substance: BACLOFEN
     Dosage: 1 TABLET DAILY
     Route: 048
     Dates: start: 20220317
  9. BACLOFEN [Concomitant]
     Active Substance: BACLOFEN
     Dosage: 1 TABLET DAILY
     Dates: start: 20220317
  10. FISH OIL [Concomitant]
     Active Substance: FISH OIL
     Dosage: SOFTGEL 250-500-1000, SIG: TWICE DAILY
  11. LEVOMEFOLATE CALCIUM [Concomitant]
     Active Substance: LEVOMEFOLATE CALCIUM
     Dosage: 680 UG, DAILY
  12. OLMESARTAN [Concomitant]
     Active Substance: OLMESARTAN
     Dosage: TAKE 1 TABLET (20 MG) BY ORAL ROUTE DAILY
     Route: 048
  13. HYDROCHLOROTHIAZIDE [Concomitant]
     Active Substance: HYDROCHLOROTHIAZIDE
     Dosage: UNK
  14. HYDROCHLOROTHIAZIDE [Concomitant]
     Active Substance: HYDROCHLOROTHIAZIDE
     Dosage: 1 TABLET (25 MG), DAILY, ORAL, STAT
     Route: 048
  15. ASPIRIN [Concomitant]
     Active Substance: ASPIRIN
     Dosage: RELEASE 1 TABLET DAILY
     Dates: start: 20220317
  16. ATORVASTATIN [Concomitant]
     Active Substance: ATORVASTATIN
     Dosage: 1 TABLET DAILY
     Dates: start: 20220223
  17. ESCITALOPRAM [Concomitant]
     Active Substance: ESCITALOPRAM OXALATE
     Dosage: 1 TABLET DAILY
     Dates: start: 20220317
  18. MAGNESIUM [Concomitant]
     Active Substance: MAGNESIUM
     Dosage: 1 TABLET DAILY
     Dates: start: 20220317
  19. VITAMIN D3 [Concomitant]
     Active Substance: CHOLECALCIFEROL
     Dosage: VITAMIN D3 50MCG (2000 UNIT) TABLET 1 TABLET DAILY
     Dates: start: 20220318
  20. LABETALOL [Concomitant]
     Active Substance: LABETALOL
     Dosage: 10 MG (10 MG), ONE TIME, INTRAVENOUS, STAT
     Route: 042
  21. METOPROLOL TARTRATE [Concomitant]
     Active Substance: METOPROLOL TARTRATE
     Dosage: 50 MG (50 MG), ONE TIME DOSE, ORAL, STAT
     Route: 048
  22. HYDRALAZINE [Concomitant]
     Active Substance: HYDRALAZINE HYDROCHLORIDE
     Dosage: 1 TABLET 50 MG, ONE TIME ORDER, ORAL WITH FOOD STAT
     Route: 048
  23. PEPCID [Concomitant]
     Active Substance: FAMOTIDINE
     Dosage: 20 MG INJECTION 20 MG (20 MG), ONE TIME DOSE, STAT
     Route: 042
  24. XANAX [Concomitant]
     Active Substance: ALPRAZOLAM
     Dosage: 1 TABLET (0.25 MG) ONCE TIME ORDER, ORAL, STAT
     Route: 048

REACTIONS (14)
  - Drug interaction [Unknown]
  - Blood thyroid stimulating hormone decreased [Unknown]
  - Cerebrovascular accident [Unknown]
  - Infection [Unknown]
  - Dyspnoea [Unknown]
  - Cognitive disorder [Unknown]
  - Nervous system disorder [Unknown]
  - Blood disorder [Unknown]
  - Sleep apnoea syndrome [Unknown]
  - Hypersensitivity [Unknown]
  - Gastrointestinal disorder [Unknown]
  - Insomnia [Unknown]
  - Sleep deficit [Unknown]
  - Sleep disorder [Unknown]

NARRATIVE: CASE EVENT DATE: 20210101
